FAERS Safety Report 7974214-8 (Version None)
Quarter: 2011Q4

REPORT INFORMATION
  Report Type: 
  Country: None (occurrence: None)
  Receive Date: 20111213
  Receipt Date: 20111206
  Transmission Date: 20120403
  Serious: Yes (Disabling, Other)
  Sender: FDA-Public Use
  Company Number: PHHY2011DK106477

PATIENT
  Sex: Female

DRUGS (1)
  1. GESTODENE AND ETHINYL ESTRADIOL [Suspect]
     Indication: ORAL CONTRACEPTION
     Dosage: UNK UKN, UNK
     Route: 048
     Dates: start: 20090301

REACTIONS (15)
  - DYSPNOEA [None]
  - TENDERNESS [None]
  - UPPER RESPIRATORY TRACT INFECTION [None]
  - CREPITATIONS [None]
  - ARTHRALGIA [None]
  - PAIN IN EXTREMITY [None]
  - SKIN DISCOLOURATION [None]
  - PULMONARY EMBOLISM [None]
  - PLEURAL DISORDER [None]
  - BACK PAIN [None]
  - COUGH [None]
  - HAEMOPTYSIS [None]
  - OEDEMA PERIPHERAL [None]
  - MALAISE [None]
  - THROMBOSIS [None]
